FAERS Safety Report 4979206-9 (Version None)
Quarter: 2006Q2

REPORT INFORMATION
  Report Type: 
  Country: None (occurrence: None)
  Receive Date: 20060421
  Receipt Date: 20060410
  Transmission Date: 20061013
  Serious: Yes (Life-Threatening, Hospitalization, Disabling, Other)
  Sender: FDA-Public Use
  Company Number: IL-GLAXOSMITHKLINE-B0420909A

PATIENT
  Age: 69 Year
  Sex: Male

DRUGS (1)
  1. AVODART [Suspect]
     Route: 065
     Dates: start: 20060228

REACTIONS (1)
  - ACUTE MYOCARDIAL INFARCTION [None]
